FAERS Safety Report 5504799-2 (Version None)
Quarter: 2007Q4

REPORT INFORMATION
  Report Type: 
  Country: None (occurrence: None)
  Receive Date: 20071031
  Receipt Date: 20071031
  Transmission Date: 20080405
  Serious: Yes (Hospitalization)
  Sender: FDA-Public Use
  Company Number: None

PATIENT
  Sex: Female
  Weight: 68.4 kg

DRUGS (2)
  1. CARBOPLATIN [Suspect]
     Dosage: 656 MG
     Dates: end: 20071009
  2. TAXOL [Suspect]
     Dosage: 310 MG

REACTIONS (5)
  - ASCITES [None]
  - BLOOD URINE PRESENT [None]
  - CONSTIPATION [None]
  - PERITONITIS [None]
  - VAGINAL DISCHARGE [None]
